FAERS Safety Report 4318240-9 (Version None)
Quarter: 2004Q1

REPORT INFORMATION
  Report Type: 
  Country: None (occurrence: None)
  Receive Date: 20040315
  Receipt Date: 20040227
  Transmission Date: 20041129
  Serious: Yes (Other)
  Sender: FDA-Public Use
  Company Number: 2004-DE-00965GD

PATIENT
  Sex: Female

DRUGS (2)
  1. NEVIRAPINE (NEVIRAPINE) (SIR) (NEVIRAPINE) [Suspect]
     Indication: HUMAN IMMUNODEFICIENCY VIRUS TRANSMISSION
     Dosage: 2 MG/KG ONCE PO
     Route: 048
  2. NEVIRAPINE (NEVIRAPINE) (SIR) (NEVIRAPINE) [Suspect]
     Indication: PROPHYLAXIS
     Dosage: 2 MG/KG ONCE PO
     Route: 048

REACTIONS (5)
  - HIV INFECTION [None]
  - HIV TEST POSITIVE [None]
  - HUMAN IMMUNODEFICIENCY VIRUS TRANSMISSION [None]
  - MATERNAL DRUGS AFFECTING FOETUS [None]
  - NEONATAL DISORDER [None]
